FAERS Safety Report 5975409-5 (Version None)
Quarter: 2008Q4

REPORT INFORMATION
  Report Type: 
  Country: None (occurrence: None)
  Receive Date: 20081128
  Receipt Date: 20081125
  Transmission Date: 20090506
  Serious: Yes (Death, Hospitalization, Other)
  Sender: FDA-Public Use
  Company Number: 2008SP011430

PATIENT
  Age: 47 Year
  Sex: Male
  Weight: 71 kg

DRUGS (14)
  1. TEMODAL [Suspect]
     Indication: OLIGODENDROGLIOMA
     Dosage: SEE IMAGE
     Route: 048
     Dates: start: 20060930, end: 20061004
  2. TEMODAL [Suspect]
     Indication: OLIGODENDROGLIOMA
     Dosage: SEE IMAGE
     Route: 048
     Dates: start: 20061020, end: 20061024
  3. TEMODAL [Suspect]
     Indication: OLIGODENDROGLIOMA
     Dosage: SEE IMAGE
     Route: 048
     Dates: start: 20061201, end: 20061205
  4. TEMODAL [Suspect]
     Indication: OLIGODENDROGLIOMA
     Dosage: SEE IMAGE
     Route: 048
     Dates: start: 20070209, end: 20070213
  5. TEMODAL [Suspect]
     Indication: OLIGODENDROGLIOMA
     Dosage: SEE IMAGE
     Route: 048
     Dates: start: 20070330, end: 20070403
  6. TEMODAL [Suspect]
     Indication: OLIGODENDROGLIOMA
     Dosage: SEE IMAGE
     Route: 048
     Dates: start: 20070525, end: 20070529
  7. TEMODAL [Suspect]
     Indication: OLIGODENDROGLIOMA
     Dosage: SEE IMAGE
     Route: 048
     Dates: start: 20070727, end: 20070731
  8. TEMODAL [Suspect]
     Indication: OLIGODENDROGLIOMA
     Dosage: SEE IMAGE
     Route: 048
     Dates: start: 20070928, end: 20071002
  9. TEMODAL [Suspect]
     Indication: OLIGODENDROGLIOMA
     Dosage: SEE IMAGE
     Route: 048
     Dates: start: 20071116, end: 20071120
  10. PAV (PROCARBAZINE) (PROCARBAZINE) [Suspect]
     Indication: OLIGODENDROGLIOMA
     Dates: start: 20020101, end: 20060301
  11. PAV (NIMUSTINE HYDROCHLORIDE) (NIMUSTINE HYDROCHLORIDE) [Suspect]
     Indication: OLIGODENDROGLIOMA
     Dates: start: 20020101, end: 20060301
  12. VINCRISTINE [Suspect]
     Indication: OLIGODENDROGLIOMA
     Dates: start: 20020101, end: 20060301
  13. KYTRIL [Concomitant]
  14. DEPAKENE [Concomitant]

REACTIONS (6)
  - ACUTE MYELOID LEUKAEMIA [None]
  - ANAEMIA [None]
  - NON-HODGKIN'S LYMPHOMA [None]
  - OLIGODENDROGLIOMA [None]
  - PLATELET COUNT DECREASED [None]
  - PRECURSOR B-LYMPHOBLASTIC LYMPHOMA [None]
